FAERS Safety Report 24388536 (Version 3)
Quarter: 2024Q4

REPORT INFORMATION
  Report Type: Spontaneous
  Country: US (occurrence: US)
  Receive Date: 20241002
  Receipt Date: 20241216
  Transmission Date: 20250114
  Serious: Yes (Hospitalization)
  Sender: CSL BEHRING
  Company Number: US-BEH-2024179532

PATIENT
  Sex: Male

DRUGS (2)
  1. HIZENTRA [Suspect]
     Active Substance: HUMAN IMMUNOGLOBULIN G
     Indication: Immunodeficiency common variable
     Dosage: 13 G, QW
     Route: 058
  2. BRILINTA [Concomitant]
     Active Substance: TICAGRELOR

REACTIONS (5)
  - Chest pain [Recovered/Resolved]
  - Vascular occlusion [Recovered/Resolved]
  - Urticaria [Recovered/Resolved]
  - Therapy interrupted [Unknown]
  - Therapy interrupted [Unknown]
